FAERS Safety Report 4375458-7 (Version None)
Quarter: 2004Q2

REPORT INFORMATION
  Report Type: 
  Country: None (occurrence: None)
  Receive Date: 20040607
  Receipt Date: 20040524
  Transmission Date: 20050107
  Serious: Yes (Hospitalization, Other)
  Sender: FDA-Public Use
  Company Number: 2004035172

PATIENT
  Age: 72 Year
  Sex: Male

DRUGS (2)
  1. TIKOSYN [Suspect]
     Indication: ILL-DEFINED DISORDER
     Dosage: 500 MCG (250 MCG, 2 IN 1 D), ORAL
     Route: 048
     Dates: end: 20040521
  2. WARFARIN SODIUM [Concomitant]

REACTIONS (5)
  - BRONCHITIS [None]
  - CARDIAC FAILURE CONGESTIVE [None]
  - CHRONIC OBSTRUCTIVE AIRWAYS DISEASE [None]
  - DIABETES MELLITUS [None]
  - WHITE BLOOD CELL COUNT INCREASED [None]
